FAERS Safety Report 20729555 (Version 1)
Quarter: 2022Q2

REPORT INFORMATION
  Report Type: Report from Study
  Country: IN (occurrence: IN)
  Receive Date: 20220420
  Receipt Date: 20220420
  Transmission Date: 20220721
  Serious: Yes (Other)
  Sender: FDA-Public Use
  Company Number: IN-NOVARTISPH-NVSC2021IN285564

PATIENT
  Age: 38 Year
  Sex: Male

DRUGS (20)
  1. SIMULECT [Suspect]
     Active Substance: BASILIXIMAB
     Indication: Renal transplant
     Dosage: 20 MG
     Route: 065
     Dates: start: 20211119, end: 20211123
  2. ZIFI CV [Concomitant]
     Indication: Product used for unknown indication
     Dosage: UNK, BID (1 STRIP 200 IN THE MORNING FOR 10 DAYS)
     Route: 048
  3. SOBISIS [Concomitant]
     Indication: Product used for unknown indication
     Dosage: UNK, TID (3 STRIPS)
     Route: 048
  4. PREDNISOLONE [Concomitant]
     Active Substance: PREDNISOLONE
     Indication: Product used for unknown indication
     Dosage: UNK, QD (21/2 TAB (8AM) 20+20, 3 STRIPS 20 20 10MG)
     Route: 048
  5. PANTODAC DSR [Concomitant]
     Indication: Product used for unknown indication
     Dosage: UNK, BID (2 STRIPS FOR 10 DAYS)
     Route: 065
  6. MYCOPHENOLATE MOFETIL [Concomitant]
     Active Substance: MYCOPHENOLATE MOFETIL
     Indication: Product used for unknown indication
     Dosage: UNK, BID (360 DOSE 2 TAB 9AM AND 2 TAB 9 PM)
     Route: 048
  7. NIFEDIPINE [Concomitant]
     Active Substance: NIFEDIPINE
     Indication: Product used for unknown indication
     Dosage: UNK, TID
     Route: 048
  8. ARKAMIN [Concomitant]
     Indication: Product used for unknown indication
     Dosage: UNK, TID
     Route: 048
  9. LINAGLIPTIN [Concomitant]
     Active Substance: LINAGLIPTIN
     Indication: Product used for unknown indication
     Dosage: UNK, QD (2 STRIPS, MORNING BEFORE FOOD)
     Route: 048
  10. LARETOL [Concomitant]
     Indication: Product used for unknown indication
     Dosage: UNK, BID (0.25 1 STRIP)
     Route: 048
  11. CYCLOPHIL ME [Concomitant]
     Indication: Product used for unknown indication
     Dosage: UNK, BID (0.6 AT 10AM AND 10PM IN LIQUID FORMULATION)
     Route: 048
  12. DUPHALAC [Concomitant]
     Active Substance: LACTULOSE
     Indication: Product used for unknown indication
     Dosage: UNK, QD (1 BOTTLE, AT BED TIME)
     Route: 048
  13. LANTUS [Concomitant]
     Active Substance: INSULIN GLARGINE
     Indication: Product used for unknown indication
     Dosage: UNK UNK, BID (15 UNITS IN MORNING, 15 UNITS IN EVENING)
     Route: 058
  14. TROYNURON [Concomitant]
     Indication: Product used for unknown indication
     Dosage: UNK, QD
     Route: 048
  15. FOLVITE [Concomitant]
     Active Substance: FOLIC ACID
     Indication: Product used for unknown indication
     Dosage: UNK, QD (AT NOON)
     Route: 048
  16. VALGANCICLOVIR HYDROCHLORIDE [Concomitant]
     Active Substance: VALGANCICLOVIR HYDROCHLORIDE
     Indication: Product used for unknown indication
     Dosage: 0.5 DOSAGE FORM, QD (450, 1/2 TAB ALTERNATIVE DAYS TO CONTINUE)
     Route: 048
  17. BACTRIM DS [Concomitant]
     Active Substance: SULFAMETHOXAZOLE\TRIMETHOPRIM
     Indication: Product used for unknown indication
     Dosage: 0.5 DOSAGE FORM, QD
     Route: 048
  18. FORCAN [Concomitant]
     Indication: Product used for unknown indication
     Dosage: UNK, QD (150 AT EVENING)
     Route: 048
  19. ERYTHROPOIETIN [Concomitant]
     Active Substance: ERYTHROPOIETIN
     Indication: Product used for unknown indication
     Dosage: UNK, BIW (10K)
     Route: 058
  20. ERYTHROPOIETIN [Concomitant]
     Active Substance: ERYTHROPOIETIN
     Dosage: UNK, BIW
     Route: 065
     Dates: start: 20211203

REACTIONS (12)
  - Kidney transplant rejection [Not Recovered/Not Resolved]
  - Renal tubular necrosis [Unknown]
  - Renal haemorrhage [Unknown]
  - Blood creatinine increased [Not Recovered/Not Resolved]
  - Complications of transplanted kidney [Unknown]
  - Blood glucose increased [Unknown]
  - Renal vascular resistance increased [Unknown]
  - Proteinuria [Unknown]
  - Focal segmental glomerulosclerosis [Unknown]
  - Inflammation [Unknown]
  - Oedema [Unknown]
  - Blood pressure increased [Unknown]

NARRATIVE: CASE EVENT DATE: 20211125
